FAERS Safety Report 8613773 (Version 2)
Quarter: 2013Q2

REPORT INFORMATION
  Report Type: Spontaneous
  Country: US (occurrence: US)
  Receive Date: 20120614
  Receipt Date: 20130617
  Transmission Date: 20140414
  Serious: Yes (Hospitalization)
  Sender: FDA-Public Use
  Company Number: US-ASTRAZENECA-2012SE36385

PATIENT
  Age: 18769 Day
  Sex: Female
  Weight: 58.5 kg

DRUGS (15)
  1. NEXIUM [Suspect]
     Indication: GASTROOESOPHAGEAL REFLUX DISEASE
     Route: 048
     Dates: start: 2007
  2. NEXIUM [Suspect]
     Indication: GASTROOESOPHAGEAL REFLUX DISEASE
     Route: 048
     Dates: start: 20071108
  3. OMEPRAZOLE [Suspect]
     Route: 048
     Dates: start: 200912
  4. OMEPRAZOLE [Suspect]
     Route: 048
     Dates: start: 20091208
  5. TUMS [Concomitant]
  6. IMITREX [Concomitant]
     Dates: start: 20071113
  7. PREMPRO [Concomitant]
     Dosage: 0.3 TO 1.5
     Dates: start: 20090816
  8. CYMBALTA [Concomitant]
     Dates: start: 20090902
  9. CLONAZEPAM [Concomitant]
     Dates: start: 20100116
  10. CLONAZEPAM [Concomitant]
     Dates: start: 20110928
  11. NITROFUR [Concomitant]
     Dates: start: 20101014
  12. PREDNISONE [Concomitant]
     Dates: start: 20120706
  13. ALPRAZOLAM [Concomitant]
     Dates: start: 20120710
  14. NICOTINE [Concomitant]
     Dates: start: 20121129
  15. PREVACID [Concomitant]
     Dates: start: 20040330

REACTIONS (10)
  - Fall [Unknown]
  - Radius fracture [Unknown]
  - Wrist fracture [Unknown]
  - Osteoporosis [Unknown]
  - Chronic obstructive pulmonary disease [Unknown]
  - Bone loss [Unknown]
  - Scoliosis [Unknown]
  - Vitamin D deficiency [Unknown]
  - Bone density decreased [Unknown]
  - Depression [Unknown]
